FAERS Safety Report 8592557-4 (Version None)
Quarter: 2012Q3

REPORT INFORMATION
  Report Type: 
  Country: None (occurrence: None)
  Receive Date: 20120814
  Receipt Date: 20120808
  Transmission Date: 20120928
  Serious: No
  Sender: FDA-Public Use
  Company Number: US-009507513-1208USA004117

PATIENT

DRUGS (2)
  1. METFORMIN HCL [Concomitant]
  2. JANUVIA [Suspect]
     Indication: TYPE 2 DIABETES MELLITUS
     Dosage: 100 MG, QD
     Route: 048
     Dates: start: 20120716, end: 20120730

REACTIONS (2)
  - ABDOMINAL PAIN [None]
  - BACK PAIN [None]
